FAERS Safety Report 7529543-9 (Version None)
Quarter: 2011Q2

REPORT INFORMATION
  Report Type: 
  Country: None (occurrence: None)
  Receive Date: 20110607
  Receipt Date: 20050905
  Transmission Date: 20111010
  Serious: Yes (Other)
  Sender: FDA-Public Use
  Company Number: PHNR2005AU01364

PATIENT
  Sex: Female

DRUGS (1)
  1. CLOZARIL [Suspect]
     Dosage: 12.5-125 MG
     Route: 048
     Dates: start: 20050812, end: 20050905

REACTIONS (1)
  - TROPONIN I INCREASED [None]
